FAERS Safety Report 22045526 (Version 1)
Quarter: 2023Q1

REPORT INFORMATION
  Report Type: Spontaneous
  Country: CN (occurrence: None)
  Receive Date: 20230228
  Receipt Date: 20230228
  Transmission Date: 20230417
  Serious: Yes (Hospitalization)
  Sender: FDA-Public Use
  Company Number: Eisai Medical Research-EC-2023-134517

PATIENT
  Age: 77 Year
  Sex: Male
  Weight: 55 kg

DRUGS (1)
  1. LENVIMA [Suspect]
     Active Substance: LENVATINIB
     Indication: Lung adenocarcinoma
     Route: 048
     Dates: start: 20221229, end: 20230123

REACTIONS (10)
  - Coagulopathy [Recovering/Resolving]
  - Haemoptysis [Recovering/Resolving]
  - Electrolyte imbalance [Recovering/Resolving]
  - Mouth haemorrhage [Recovering/Resolving]
  - Cough [Recovering/Resolving]
  - Oropharyngeal pain [Recovering/Resolving]
  - Renal failure [Recovering/Resolving]
  - Aphthous ulcer [Recovering/Resolving]
  - Nausea [Recovering/Resolving]
  - Vomiting [Recovering/Resolving]

NARRATIVE: CASE EVENT DATE: 20230103
